FAERS Safety Report 4327790-0 (Version None)
Quarter: 2004Q1

REPORT INFORMATION
  Report Type: 
  Country: None (occurrence: None)
  Receive Date: 20040325
  Receipt Date: 20040309
  Transmission Date: 20041129
  Serious: Yes (Hospitalization)
  Sender: FDA-Public Use
  Company Number: AU-JNJFOC-20040304345

PATIENT
  Age: 84 Year
  Sex: Male

DRUGS (9)
  1. TRAMADOL HCL [Suspect]
     Indication: PAIN
     Dosage: 300 MG, IN 1 AS NECESSARY, UNKNOWN
     Dates: start: 20030826, end: 20030902
  2. MEPERIDINE HYDROCHLORIDE [Suspect]
     Indication: PAIN
     Dosage: 10 MG, IN 1 AS NECESSARY, INTRAVENOUS
     Route: 042
     Dates: start: 20030829, end: 20030831
  3. METFORMIN HCL [Concomitant]
  4. ASPIRIN [Concomitant]
  5. OMEPRAZOLE [Concomitant]
  6. GLIPIZIDE [Concomitant]
  7. NIFEDIPINE [Concomitant]
  8. TRANDOLAPRIL (TRANDOLAPRIL) [Concomitant]
  9. SIMVASTATIN [Concomitant]

REACTIONS (7)
  - CHILLS [None]
  - CONFUSIONAL STATE [None]
  - HYPERHIDROSIS [None]
  - MUSCLE TWITCHING [None]
  - NIGHTMARE [None]
  - SOMNOLENCE [None]
  - TREMOR [None]
